FAERS Safety Report 14368015 (Version 1)
Quarter: 2018Q1

REPORT INFORMATION
  Report Type: Spontaneous
  Country: US (occurrence: US)
  Receive Date: 20180109
  Receipt Date: 20180109
  Transmission Date: 20180509
  Serious: Yes (Death)
  Sender: FDA-Public Use
  Company Number: None

PATIENT
  Sex: Male

DRUGS (4)
  1. LONSURF [Suspect]
     Active Substance: TIPIRACIL HYDROCHLORIDE\TRIFLURIDINE
     Indication: COLON CANCER
     Route: 048
     Dates: start: 20171208
  2. FUROSEMIDE. [Concomitant]
     Active Substance: FUROSEMIDE
  3. DEXAMETHASON [Concomitant]
     Active Substance: DEXAMETHASONE
  4. LORAZEPAM. [Concomitant]
     Active Substance: LORAZEPAM

REACTIONS (1)
  - Death [None]
